FAERS Safety Report 15894542 (Version 1)
Quarter: 2019Q1

REPORT INFORMATION
  Report Type: Spontaneous
  Country: FR (occurrence: FR)
  Receive Date: 20190131
  Receipt Date: 20190131
  Transmission Date: 20190417
  Serious: Yes (Hospitalization)
  Sender: FDA-Public Use
  Company Number: FR-TEVA-2019-FR-1003819

PATIENT
  Age: 89 Year
  Sex: Female
  Weight: 54 kg

DRUGS (14)
  1. VITAMINE B12 [Suspect]
     Active Substance: CYANOCOBALAMIN
     Indication: HYPOVITAMINOSIS
     Dosage: 1-0-0
     Route: 048
     Dates: start: 201808, end: 20181120
  2. LASILIX 40 MG, COMPRIM? S?CABLE [Suspect]
     Active Substance: FUROSEMIDE
     Indication: HYPERTENSION
     Dosage: 40 MILLIGRAM DAILY; 1-0-0
     Route: 048
     Dates: start: 2016
  3. LYSANXIA 15 MG/ML, SOLUTION BUVABLE EN GOUTTES [Suspect]
     Active Substance: PRAZEPAM
     Indication: ANXIETY
     Dosage: 10 GTT DAILY; 5-0-5 (GOUTTES) SB
     Route: 048
     Dates: start: 201808, end: 20181120
  4. MYCOSTER [Suspect]
     Active Substance: CICLOPIROX\CICLOPIROX OLAMINE
     Indication: DERMATOPHYTOSIS
     Dosage: 1 DOSAGE FORMS DAILY; 1X / J ON THE NAILS
     Route: 003
     Dates: start: 201808, end: 20181120
  5. DOLIPRANE [Suspect]
     Active Substance: ACETAMINOPHEN
     Indication: PAIN
     Dosage: 4 GRAM DAILY; 2-2-2-2
     Route: 048
     Dates: start: 2016
  6. LEVOTHYROX 50 MICROGRAMMES, COMPRIM? S?CABLE [Suspect]
     Active Substance: LEVOTHYROXINE SODIUM
     Indication: HYPOTHYROIDISM
     Dosage: 50 MICROGRAM DAILY; 1-0-0
     Route: 048
     Dates: start: 2016
  7. SULFARLEM [Suspect]
     Active Substance: ANETHOLTRITHION
     Indication: APTYALISM
     Dosage: 150 MILLIGRAM DAILY; 2-2-2
     Route: 048
     Dates: start: 201808
  8. BISOCE 2,5 MG, COMPRIM? PELLICUL? S?CABLE [Suspect]
     Active Substance: BISOPROLOL FUMARATE
     Indication: CARDIAC FAILURE
     Dosage: 2.5 MILLIGRAM DAILY; 1-0-0
     Route: 048
     Dates: start: 2016
  9. LERCAN 10 MG, COMPRIM? PELLICUL? S?CABLE [Suspect]
     Active Substance: LERCANIDIPINE HYDROCHLORIDE
     Indication: HYPERTENSION
     Dosage: 10 MILLIGRAM DAILY; 0-0-1
     Route: 048
     Dates: start: 2016
  10. ANAFRANIL [Suspect]
     Active Substance: CLOMIPRAMINE HYDROCHLORIDE
     Indication: DEPRESSION
     Dosage: 75 MILLIGRAM DAILY; 1-0-0
     Route: 048
     Dates: start: 2016
  11. TRAMADOL (CHLORHYDRATE DE) [Suspect]
     Active Substance: TRAMADOL HYDROCHLORIDE
     Indication: PAIN
     Dosage: 5 GTT DAILY;
     Route: 048
     Dates: start: 201808
  12. ALPRAZOLAM. [Suspect]
     Active Substance: ALPRAZOLAM
     Indication: ANXIETY
     Dosage: 1 MILLIGRAM DAILY; 1-0.5-1 (0.25MG)
     Route: 048
     Dates: start: 2016
  13. MODOPAR 62,5 (50 MG/12,5 MG), G?LULE [Suspect]
     Active Substance: BENSERAZIDE HYDROCHLORIDE\LEVODOPA
     Indication: PARKINSON^S DISEASE
     Dosage: 2 DOSAGE FORMS DAILY; 1-0-1
     Route: 048
     Dates: start: 2016, end: 20181122
  14. STAGID 700 MG, COMPRIM? S?CABLE [Suspect]
     Active Substance: METFORMIN PAMOATE
     Indication: TYPE 2 DIABETES MELLITUS
     Dosage: 2100 MILLIGRAM DAILY; 1-1-1
     Route: 048
     Dates: start: 201808

REACTIONS (2)
  - General physical health deterioration [Not Recovered/Not Resolved]
  - Fall [Not Recovered/Not Resolved]

NARRATIVE: CASE EVENT DATE: 20181107
